FAERS Safety Report 8075553-5 (Version None)
Quarter: 2012Q1

REPORT INFORMATION
  Report Type: 
  Country: None (occurrence: None)
  Receive Date: 20120127
  Receipt Date: 20120119
  Transmission Date: 20120608
  Serious: Yes (Other)
  Sender: FDA-Public Use
  Company Number: CO-BRISTOL-MYERS SQUIBB COMPANY-16358368

PATIENT
  Sex: Female

DRUGS (3)
  1. ORENCIA [Suspect]
     Dosage: DURING 5 MONTHS USING THE DRUG
  2. METHOTREXATE [Concomitant]
  3. PENICILLIN G SODIUM [Concomitant]
     Indication: INFECTION

REACTIONS (1)
  - LUPUS-LIKE SYNDROME [None]
